FAERS Safety Report 20126634 (Version 1)
Quarter: 2021Q4

REPORT INFORMATION
  Report Type: Spontaneous
  Country: US (occurrence: None)
  Receive Date: 20211128
  Receipt Date: 20211128
  Transmission Date: 20220304
  Serious: Yes (Disabling, Other)
  Sender: FDA-Public Use
  Company Number: None

PATIENT
  Age: 58 Year
  Sex: Female
  Weight: 107.55 kg

DRUGS (23)
  1. FUROSEMIDE [Suspect]
     Active Substance: FUROSEMIDE
     Indication: Chronic kidney disease
     Dosage: OTHER QUANTITY : 1 TABLET(S);?FREQUENCY : DAILY;?
     Route: 048
  2. GABAPENTIN [Concomitant]
     Active Substance: GABAPENTIN
  3. CLONAZEPAM [Concomitant]
     Active Substance: CLONAZEPAM
  4. FUROSEMIDE [Concomitant]
     Active Substance: FUROSEMIDE
  5. CALCITRIOL [Concomitant]
     Active Substance: CALCITRIOL
  6. KCL [Concomitant]
     Active Substance: POTASSIUM CHLORIDE
  7. PROPRANOLOL [Concomitant]
     Active Substance: PROPRANOLOL HYDROCHLORIDE
  8. ALLOPURINOL [Concomitant]
     Active Substance: ALLOPURINOL
  9. ATORVASTATIN [Concomitant]
     Active Substance: ATORVASTATIN
  10. LANTUS [Concomitant]
     Active Substance: INSULIN GLARGINE
  11. HUMALOG [Concomitant]
     Active Substance: INSULIN LISPRO
  12. BENZONATATE [Concomitant]
  13. TRAMADOL [Concomitant]
  14. ALBUTEROL [Concomitant]
     Active Substance: ALBUTEROL
  15. TART CHERRY [Concomitant]
  16. GENTLE IRON [Concomitant]
  17. B-50 COMPLEX [Concomitant]
  18. CANNABIDIOL [Concomitant]
     Active Substance: CANNABIDIOL
  19. DOCUSATE SODIUM [Concomitant]
  20. DOCUSATE SODIUM\SENNA LEAF [Concomitant]
     Active Substance: DOCUSATE SODIUM\SENNA LEAF
  21. ACETAMINOPHEN [Concomitant]
     Active Substance: ACETAMINOPHEN
  22. ROBITUSSIN DM [Concomitant]
     Active Substance: DEXTROMETHORPHAN HYDROBROMIDE\GUAIFENESIN
  23. DIPHENHYDRAMINE [Concomitant]
     Active Substance: DIPHENHYDRAMINE

REACTIONS (8)
  - Drug ineffective [None]
  - Product substitution issue [None]
  - Chronic kidney disease [None]
  - Disease progression [None]
  - Dehydration [None]
  - Product dispensing error [None]
  - Incorrect dose administered [None]
  - Weight increased [None]

NARRATIVE: CASE EVENT DATE: 20190201
